FAERS Safety Report 19797973 (Version 1)
Quarter: 2021Q3

REPORT INFORMATION
  Report Type: Report from Study
  Country: CA (occurrence: CA)
  Receive Date: 20210907
  Receipt Date: 20210907
  Transmission Date: 20211014
  Serious: Yes (Other)
  Sender: FDA-Public Use
  Company Number: CA-ACCORD-237417

PATIENT
  Age: 67 Year
  Sex: Male

DRUGS (16)
  1. FLUTICASONE PROPIONATE/SALMETEROL XINAFOATE [Concomitant]
     Active Substance: FLUTICASONE PROPIONATE\SALMETEROL XINAFOATE
  2. CLOPIDOGREL [Concomitant]
     Active Substance: CLOPIDOGREL BISULFATE
  3. ATORVASTATIN [Concomitant]
     Active Substance: ATORVASTATIN
  4. OENOTHERA BIENNIS/OENOTHERA BIENNIS OIL [Concomitant]
  5. BISOPROLOL [Concomitant]
     Active Substance: BISOPROLOL
  6. ASCORBIC ACID. [Concomitant]
     Active Substance: ASCORBIC ACID
  7. PANTOPRAZOLE [Concomitant]
     Active Substance: PANTOPRAZOLE
  8. FRAGMIN [Concomitant]
     Active Substance: DALTEPARIN SODIUM
  9. LANTUS [Concomitant]
     Active Substance: INSULIN GLARGINE
     Dosage: SOLUTION SUBCUTANEOUS
  10. MYCOPHENOLIC ACID. [Suspect]
     Active Substance: MYCOPHENOLIC ACID
     Indication: PRODUCT USED FOR UNKNOWN INDICATION
     Dosage: 2 EVERY 1 DAYS
  11. ELIQUIS [Concomitant]
     Active Substance: APIXABAN
  12. NORTRIPTYLINE [Concomitant]
     Active Substance: NORTRIPTYLINE
  13. PREDNISONE. [Concomitant]
     Active Substance: PREDNISONE
  14. RAMIPRIL. [Concomitant]
     Active Substance: RAMIPRIL
  15. RITUXIMAB. [Suspect]
     Active Substance: RITUXIMAB
     Indication: VASCULITIS
     Route: 042
  16. HYDROMORPHONE [Concomitant]
     Active Substance: HYDROMORPHONE

REACTIONS (1)
  - Myocardial infarction [Unknown]
